FAERS Safety Report 10921144 (Version 1)
Quarter: 2015Q1

REPORT INFORMATION
  Report Type: Spontaneous
  Country: US (occurrence: None)
  Receive Date: 20150313
  Receipt Date: 20150313
  Transmission Date: 20150721
  Serious: No
  Sender: FDA-Public Use
  Company Number: None

PATIENT
  Age: 45 Year
  Sex: Female

DRUGS (6)
  1. AMPYRA [Suspect]
     Active Substance: DALFAMPRIDINE
     Indication: MULTIPLE SCLEROSIS
     Route: 048
     Dates: start: 201401, end: 201406
  2. FLONASE [Concomitant]
     Active Substance: FLUTICASONE PROPIONATE
  3. MODAFINIL. [Concomitant]
     Active Substance: MODAFINIL
  4. BACLOFEN. [Concomitant]
     Active Substance: BACLOFEN
  5. AMPYRA [Concomitant]
     Active Substance: DALFAMPRIDINE
  6. RITUXAN [Concomitant]
     Active Substance: RITUXIMAB

REACTIONS (1)
  - Drug ineffective [None]

NARRATIVE: CASE EVENT DATE: 20140618
